FAERS Safety Report 7716521-X (Version None)
Quarter: 2011Q3

REPORT INFORMATION
  Report Type: 
  Country: None (occurrence: None)
  Receive Date: 20110829
  Receipt Date: 20110824
  Transmission Date: 20111222
  Serious: Yes (Life-Threatening, Hospitalization, Disabling, Other)
  Sender: FDA-Public Use
  Company Number: GB-ASTRAZENECA-2011SE41034

PATIENT
  Age: 43 Year
  Sex: Female

DRUGS (8)
  1. FUROSEMIDE [Concomitant]
  2. VALPROATE SODIUM [Concomitant]
  3. SEROQUEL XR [Suspect]
     Indication: SCHIZOAFFECTIVE DISORDER
     Route: 048
  4. ENOXAPARIN SODIUM [Concomitant]
  5. RANITIDINE [Concomitant]
  6. HYDRALAZINE HCL [Concomitant]
  7. SEROQUEL XR [Suspect]
     Route: 048
  8. SANDO-K [Concomitant]

REACTIONS (9)
  - TACHYCARDIA [None]
  - CARDIOMYOPATHY [None]
  - MATERNAL EXPOSURE DURING PREGNANCY [None]
  - SINUS TACHYCARDIA [None]
  - CARDIAC FAILURE [None]
  - CARDIAC ARREST [None]
  - VENTRICULAR TACHYCARDIA [None]
  - EXTRASYSTOLES [None]
  - VENTRICULAR DYSFUNCTION [None]
